FAERS Safety Report 9668787 (Version 2)
Quarter: 2013Q4

REPORT INFORMATION
  Report Type: Spontaneous
  Country: DE (occurrence: DE)
  Receive Date: 20131105
  Receipt Date: 20131105
  Transmission Date: 20140711
  Serious: Yes (Hospitalization)
  Sender: FDA-Public Use
  Company Number: DE-JNJFOC-20131012184

PATIENT
  Age: 84 Year
  Sex: Female
  Weight: 56.4 kg

DRUGS (2)
  1. RISPERDAL [Suspect]
     Indication: AGGRESSION
     Route: 048
     Dates: start: 20130831, end: 20130904
  2. EXELON [Concomitant]
     Indication: DEMENTIA
     Route: 062
     Dates: start: 20130830

REACTIONS (3)
  - Dyspnoea [Recovered/Resolved]
  - Hyperhidrosis [Recovered/Resolved]
  - Oedema mucosal [Recovered/Resolved]
